FAERS Safety Report 11594232 (Version 1)
Quarter: 2015Q4

REPORT INFORMATION
  Report Type: Spontaneous
  Country: US (occurrence: US)
  Receive Date: 20151005
  Receipt Date: 20151005
  Transmission Date: 20160304
  Serious: Yes (Other)
  Sender: FDA-Public Use
  Company Number: US-SA-2015SA024944

PATIENT
  Age: 72 Year
  Sex: Female

DRUGS (2)
  1. ARAVA [Suspect]
     Active Substance: LEFLUNOMIDE
     Indication: RHEUMATOID ARTHRITIS
     Route: 065
     Dates: start: 2013
  2. METHOTREXATE [Suspect]
     Active Substance: METHOTREXATE
     Indication: ARTHRALGIA
     Route: 065
     Dates: start: 2014

REACTIONS (5)
  - Rheumatoid arthritis [Not Recovered/Not Resolved]
  - Pruritus [Recovered/Resolved]
  - Skin warm [Recovered/Resolved]
  - Rash [Recovered/Resolved]
  - Skin discolouration [Recovered/Resolved]
